FAERS Safety Report 20228224 (Version 2)
Quarter: 2022Q1

REPORT INFORMATION
  Report Type: Spontaneous
  Country: CN (occurrence: CN)
  Receive Date: 20211224
  Receipt Date: 20220120
  Transmission Date: 20220424
  Serious: Yes (Life-Threatening, Other)
  Sender: FDA-Public Use
  Company Number: CN-SA-SAC20211223000237

PATIENT
  Age: 52 Year
  Sex: Female
  Weight: 68 kg

DRUGS (12)
  1. CAPECITABINE [Suspect]
     Active Substance: CAPECITABINE
     Indication: Chemotherapy
     Dosage: 1500 MG, QD
     Route: 048
     Dates: start: 20210909, end: 20210910
  2. CAPECITABINE [Suspect]
     Active Substance: CAPECITABINE
     Dosage: 1500 MG, IN THE MORNING
     Route: 048
     Dates: start: 20211110, end: 2021
  3. CAPECITABINE [Suspect]
     Active Substance: CAPECITABINE
     Dosage: 2000 MG, IN THE EVENING
     Route: 048
     Dates: start: 20211110, end: 2021
  4. BEVACIZUMAB [Suspect]
     Active Substance: BEVACIZUMAB
     Dosage: 500 MG, QD
     Dates: start: 20211110, end: 20211110
  5. OXALIPLATIN [Suspect]
     Active Substance: OXALIPLATIN
     Indication: Chemotherapy
     Dosage: 200 MG, QD
     Dates: start: 20211110, end: 20211110
  6. NITROGLYCERIN [Concomitant]
     Active Substance: NITROGLYCERIN
     Indication: Hypertension
     Dosage: UNK
  7. FUROSEMIDE [Concomitant]
     Active Substance: FUROSEMIDE
     Route: 040
  8. METHYLPREDNISOLONE [Concomitant]
     Active Substance: METHYLPREDNISOLONE
     Indication: Muscle spasms
     Dosage: UNK
     Route: 041
  9. METHYLPREDNISOLONE [Concomitant]
     Active Substance: METHYLPREDNISOLONE
     Indication: Respiration abnormal
  10. DOXOFYLLINE [Concomitant]
     Active Substance: DOXOFYLLINE
     Indication: Muscle spasms
     Dosage: UNK
  11. DOXOFYLLINE [Concomitant]
     Active Substance: DOXOFYLLINE
     Indication: Respiration abnormal
  12. PHOSPHOLIPID [Concomitant]
     Active Substance: PHOSPHOLIPID
     Indication: Liver disorder
     Dosage: UNK

REACTIONS (2)
  - Neurotoxicity [Recovered/Resolved]
  - Pharyngeal paraesthesia [Recovered/Resolved]

NARRATIVE: CASE EVENT DATE: 20211110
